FAERS Safety Report 4638406-8 (Version None)
Quarter: 2005Q2

REPORT INFORMATION
  Report Type: 
  Country: None (occurrence: None)
  Receive Date: 20050415
  Receipt Date: 20050330
  Transmission Date: 20051028
  Serious: Yes (Life-Threatening, Hospitalization, Other)
  Sender: FDA-Public Use
  Company Number: DE_041214976

PATIENT
  Age: 49 Year
  Sex: Female
  Weight: 74 kg

DRUGS (7)
  1. GEMZAR [Suspect]
     Indication: TRANSITIONAL CELL CARCINOMA
     Dosage: 1000 MG/M2
     Route: 042
     Dates: start: 20040805, end: 20041201
  2. CISPLATIN [Concomitant]
  3. ZOFRAN (ONDANSETRON HYDROCHLORIDE0 [Concomitant]
  4. EMEND [Concomitant]
  5. DEXAMETHASONE [Concomitant]
  6. EPOETIN (DEXAMETHASONE0 [Concomitant]
  7. CORTICOSTEROID NOS [Concomitant]

REACTIONS (24)
  - CHOLECYSTITIS [None]
  - CONVULSION [None]
  - CULTURE URINE POSITIVE [None]
  - ELECTROLYTE IMBALANCE [None]
  - ENTEROCOCCAL INFECTION [None]
  - ESCHERICHIA INFECTION [None]
  - FATIGUE [None]
  - GENERALISED OEDEMA [None]
  - HAEMORRHAGE [None]
  - HEPATIC FAILURE [None]
  - HEPATIC FIBROSIS [None]
  - HEPATIC STEATOSIS [None]
  - HEPATITIS C [None]
  - HEPATITIS VIRAL [None]
  - HEPATOCELLULAR DAMAGE [None]
  - JAUNDICE [None]
  - LOSS OF CONSCIOUSNESS [None]
  - OEDEMA PERIPHERAL [None]
  - PANCYTOPENIA [None]
  - PSEUDOMONAS INFECTION [None]
  - RENAL FAILURE [None]
  - THROMBOPHLEBITIS [None]
  - URINARY TRACT INFECTION [None]
  - ZIEVE SYNDROME [None]
